FAERS Safety Report 7306237-6 (Version None)
Quarter: 2011Q1

REPORT INFORMATION
  Report Type: 
  Country: None (occurrence: None)
  Receive Date: 20110222
  Receipt Date: 20110217
  Transmission Date: 20110831
  Serious: Yes (Other)
  Sender: FDA-Public Use
  Company Number: US-JNJFOC-20100401924

PATIENT
  Sex: Male
  Weight: 149.69 kg

DRUGS (13)
  1. ACETYLSALICYLIC ACID [Concomitant]
  2. ANTI-HYPERTENSIVE [Concomitant]
     Indication: HYPERTENSION
  3. COUMADIN [Concomitant]
  4. FUROSEMIDE [Concomitant]
  5. ATORVASTATIN [Concomitant]
  6. GLIMEPIRIDE [Concomitant]
  7. METFORMIN HCL [Concomitant]
  8. STELARA [Suspect]
     Route: 058
  9. IRBESARTAN AND HYDROCHLOROTHIAZIDE [Concomitant]
  10. ALLOPURINOL [Concomitant]
  11. CLOPIDOGREL [Concomitant]
  12. STELARA [Suspect]
     Indication: PSORIASIS
     Route: 058
  13. AMIODARONE HCL [Concomitant]

REACTIONS (1)
  - NASAL SINUS CANCER [None]
